FAERS Safety Report 6812904-0 (Version None)
Quarter: 2010Q3

REPORT INFORMATION
  Report Type: 
  Country: None (occurrence: None)
  Receive Date: 20100701
  Receipt Date: 20100623
  Transmission Date: 20110219
  Serious: Yes (Death)
  Sender: FDA-Public Use
  Company Number: FR-BRISTOL-MYERS SQUIBB COMPANY-15165020

PATIENT

DRUGS (4)
  1. LOMUSTINE [Suspect]
     Indication: HODGKIN'S DISEASE
  2. VINBLASTINE SULFATE [Suspect]
     Indication: HODGKIN'S DISEASE
  3. PROCARBAZINE HYDROCHLORIDE [Suspect]
     Indication: HODGKIN'S DISEASE
  4. PREDNISOLONE [Suspect]
     Indication: HODGKIN'S DISEASE

REACTIONS (1)
  - ACCIDENTAL OVERDOSE [None]
